FAERS Safety Report 10427046 (Version 1)
Quarter: 2014Q3

REPORT INFORMATION
  Report Type: Spontaneous
  Country: NL (occurrence: NL)
  Receive Date: 20140903
  Receipt Date: 20140903
  Transmission Date: 20150326
  Serious: Yes (Hospitalization)
  Sender: FDA-Public Use
  Company Number: PHHY2014NL107692

PATIENT
  Age: 47 Year
  Sex: Female

DRUGS (3)
  1. TENOFOVIR [Interacting]
     Active Substance: TENOFOVIR
     Indication: HIV INFECTION
     Dosage: 300 MG, QD
  2. ERGOTAMINE TARTRATE [Suspect]
     Active Substance: ERGOTAMINE TARTRATE
     Indication: MIGRAINE
  3. LAMIVUDINE. [Interacting]
     Active Substance: LAMIVUDINE
     Indication: HIV INFECTION
     Dosage: 300 MG, QD

REACTIONS (9)
  - Wound [Recovered/Resolved]
  - Hypoaesthesia [Recovered/Resolved]
  - Extremity necrosis [Recovered/Resolved]
  - Cyanosis [Recovered/Resolved]
  - Drug interaction [Unknown]
  - Ergot poisoning [Recovered/Resolved]
  - Peripheral ischaemia [Recovered/Resolved]
  - Headache [Recovered/Resolved]
  - Pain in extremity [Recovered/Resolved]
